FAERS Safety Report 21296855 (Version 1)
Quarter: 2022Q3

REPORT INFORMATION
  Report Type: Spontaneous
  Country: JP (occurrence: JP)
  Receive Date: 20220906
  Receipt Date: 20220906
  Transmission Date: 20221027
  Serious: Yes (Hospitalization)
  Sender: FDA-Public Use
  Company Number: JP-MH-2022M1090555AA

PATIENT
  Age: 8 Decade
  Sex: Female

DRUGS (8)
  1. CARBOPLATIN [Suspect]
     Active Substance: CARBOPLATIN
     Indication: Neuroendocrine tumour
     Dosage: UNK
     Route: 065
  2. CARBOPLATIN [Suspect]
     Active Substance: CARBOPLATIN
     Indication: Metastasis
  3. OCTREOTIDE [Suspect]
     Active Substance: OCTREOTIDE
     Indication: Neuroendocrine tumour
     Dosage: UNK
     Route: 065
  4. OCTREOTIDE [Suspect]
     Active Substance: OCTREOTIDE
     Indication: Metastasis
  5. ETOPOSIDE [Suspect]
     Active Substance: ETOPOSIDE
     Indication: Neuroendocrine tumour
     Dosage: UNK
     Route: 065
  6. ETOPOSIDE [Suspect]
     Active Substance: ETOPOSIDE
     Indication: Metastasis
  7. STREPTOZOCIN [Suspect]
     Active Substance: STREPTOZOCIN
     Indication: Neuroendocrine tumour
     Dosage: UNK
     Route: 065
  8. STREPTOZOCIN [Suspect]
     Active Substance: STREPTOZOCIN
     Indication: Metastasis

REACTIONS (2)
  - Disease progression [Unknown]
  - Drug ineffective [Unknown]
